FAERS Safety Report 6915428-5 (Version None)
Quarter: 2010Q3

REPORT INFORMATION
  Report Type: 
  Country: None (occurrence: None)
  Receive Date: 20100806
  Receipt Date: 20100806
  Transmission Date: 20110219
  Serious: Yes (Disabling)
  Sender: FDA-Public Use
  Company Number: None

PATIENT
  Sex: Female
  Weight: 59.1 kg

DRUGS (2)
  1. AMBIEN [Suspect]
     Indication: FOOT OPERATION
     Dosage: 10MG 1 AT BEDTIME ORAL
     Route: 048
     Dates: start: 20091229, end: 20100220
  2. AMBIEN [Suspect]
     Indication: INSOMNIA
     Dosage: 10MG 1 AT BEDTIME ORAL
     Route: 048
     Dates: start: 20091229, end: 20100220

REACTIONS (1)
  - MENTAL IMPAIRMENT [None]
